FAERS Safety Report 8178939-3 (Version None)
Quarter: 2012Q1

REPORT INFORMATION
  Report Type: 
  Country: None (occurrence: None)
  Receive Date: 20120302
  Receipt Date: 20120223
  Transmission Date: 20120608
  Serious: No
  Sender: FDA-Public Use
  Company Number: US-BIOGENIDEC-2012BI007024

PATIENT
  Age: 61 Year
  Sex: Male

DRUGS (4)
  1. TYSABRI [Suspect]
     Route: 042
     Dates: start: 20110916
  2. AVONEX [Concomitant]
     Route: 030
  3. AVONEX [Concomitant]
     Indication: MULTIPLE SCLEROSIS
     Route: 030
     Dates: start: 20010319
  4. TYSABRI [Suspect]
     Indication: MULTIPLE SCLEROSIS
     Route: 042
     Dates: start: 20070112, end: 20070112

REACTIONS (2)
  - ASTHENOPIA [None]
  - ARTHRALGIA [None]
